FAERS Safety Report 10708266 (Version 1)
Quarter: 2015Q1

REPORT INFORMATION
  Report Type: Spontaneous
  Country: FR (occurrence: FR)
  Receive Date: 20150113
  Receipt Date: 20150113
  Transmission Date: 20150721
  Serious: Yes (Congenital Anomaly, Other)
  Sender: FDA-Public Use
  Company Number: FR-PFIZER INC-2015003794

PATIENT
  Sex: Male

DRUGS (2)
  1. PROPRANOLOL [Suspect]
     Active Substance: PROPRANOLOL\PROPRANOLOL HYDROCHLORIDE
     Indication: TACHYCARDIA
     Dosage: 5 MG, 2X/DAY
     Route: 064
     Dates: start: 2004
  2. EFFEXOR LP [Suspect]
     Active Substance: VENLAFAXINE HYDROCHLORIDE
     Indication: DEPRESSION
     Dosage: 37.5 MG, 2X/DAY
     Route: 064
     Dates: start: 2004

REACTIONS (9)
  - Brachycephaly [Unknown]
  - Protrusion tongue [Unknown]
  - Thyroid malformation [Not Recovered/Not Resolved]
  - Dysmorphism [Not Recovered/Not Resolved]
  - Maternal exposure during pregnancy [Not Recovered/Not Resolved]
  - Foetal arrhythmia [Unknown]
  - Neonatal behavioural syndrome [Recovering/Resolving]
  - Bone deformity [Not Recovered/Not Resolved]
  - Congenital hypothyroidism [Unknown]

NARRATIVE: CASE EVENT DATE: 20141025
